FAERS Safety Report 7275151-7 (Version None)
Quarter: 2011Q1

REPORT INFORMATION
  Report Type: 
  Country: None (occurrence: None)
  Receive Date: 20110204
  Receipt Date: 20110124
  Transmission Date: 20110831
  Serious: Yes (Other)
  Sender: FDA-Public Use
  Company Number: PHHY2010SI81831

PATIENT
  Sex: Male
  Weight: 72 kg

DRUGS (6)
  1. DEXAMETHASONE [Concomitant]
  2. MEDROL [Concomitant]
  3. ALKERAN [Concomitant]
  4. CGP 42446 [Suspect]
     Dosage: 4MG/5ML/28DAYS
     Dates: start: 20081216
  5. ZALDIAR [Concomitant]
  6. THALIDOMIDE [Concomitant]

REACTIONS (1)
  - HAEMOGLOBIN DECREASED [None]
